FAERS Safety Report 5421123-4 (Version None)
Quarter: 2007Q3

REPORT INFORMATION
  Report Type: 
  Country: None (occurrence: None)
  Receive Date: 20070821
  Receipt Date: 20070813
  Transmission Date: 20080115
  Serious: Yes (Life-Threatening, Hospitalization)
  Sender: FDA-Public Use
  Company Number: DE-SANOFI-SYNTHELABO-A04200700924

PATIENT
  Sex: Female
  Weight: 51 kg

DRUGS (8)
  1. FLUOROURACIL [Concomitant]
     Indication: METASTASES TO LIVER
     Route: 041
     Dates: start: 20070201, end: 20070201
  2. FLUOROURACIL [Concomitant]
     Indication: COLON CANCER
     Route: 041
     Dates: start: 20070201, end: 20070201
  3. BEVACIZUMAB [Concomitant]
     Indication: METASTASES TO LIVER
     Route: 041
     Dates: start: 20070201, end: 20070201
  4. BEVACIZUMAB [Concomitant]
     Indication: COLON CANCER
     Route: 041
     Dates: start: 20070201, end: 20070201
  5. OXALIPLATIN [Suspect]
     Indication: METASTASES TO LIVER
     Route: 041
     Dates: start: 20070228, end: 20070228
  6. OXALIPLATIN [Suspect]
     Indication: COLON CANCER
     Route: 041
     Dates: start: 20070228, end: 20070228
  7. FOLINIC ACID [Concomitant]
     Indication: METASTASES TO LIVER
     Route: 041
     Dates: start: 20070201, end: 20070201
  8. FOLINIC ACID [Concomitant]
     Indication: COLON CANCER
     Route: 041
     Dates: start: 20070201, end: 20070201

REACTIONS (5)
  - CEREBRAL HAEMORRHAGE [None]
  - HEMIPARESIS [None]
  - PNEUMONIA ASPIRATION [None]
  - RESPIRATORY FAILURE [None]
  - TOXIC NEUROPATHY [None]
